FAERS Safety Report 17679996 (Version 1)
Quarter: 2020Q2

REPORT INFORMATION
  Report Type: Spontaneous
  Country: SE (occurrence: SE)
  Receive Date: 20200417
  Receipt Date: 20200417
  Transmission Date: 20200714
  Serious: Yes (Hospitalization)
  Sender: FDA-Public Use
  Company Number: SE-TEVA-2020-SE-1223891

PATIENT
  Age: 77 Year
  Sex: Female

DRUGS (12)
  1. MAGNESIUM MEDA [Concomitant]
  2. AMLODIPIN [Concomitant]
     Active Substance: AMLODIPINE BESYLATE
  3. FURIX [Concomitant]
  4. CRESTOR [Concomitant]
     Active Substance: ROSUVASTATIN CALCIUM
     Dates: start: 20200214
  5. ALLOPURINOL. [Suspect]
     Active Substance: ALLOPURINOL
     Indication: HYPERURICAEMIA
     Dosage: 300 MG
     Route: 048
     Dates: start: 20200218, end: 20200326
  6. ALVEDON [Concomitant]
     Active Substance: ACETAMINOPHEN
  7. NITROLINGUAL [Concomitant]
     Active Substance: NITROGLYCERIN
  8. BRILIQUE [Concomitant]
     Active Substance: TICAGRELOR
     Dates: start: 20200204
  9. BEHEPAN [Concomitant]
  10. ACETYLSALICYLSYRA [Concomitant]
     Active Substance: ASPIRIN
  11. CANDESARTAN. [Concomitant]
     Active Substance: CANDESARTAN
  12. BISOPROLOL [Concomitant]
     Active Substance: BISOPROLOL

REACTIONS (1)
  - Drug reaction with eosinophilia and systemic symptoms [Not Recovered/Not Resolved]

NARRATIVE: CASE EVENT DATE: 20200325
